FAERS Safety Report 20289332 (Version 1)
Quarter: 2022Q1

REPORT INFORMATION
  Report Type: Spontaneous
  Country: US (occurrence: US)
  Receive Date: 20220104
  Receipt Date: 20220104
  Transmission Date: 20220423
  Serious: No
  Sender: FDA-Public Use
  Company Number: US-ORGANON-O2201USA000116

PATIENT
  Age: 29 Year
  Sex: Female

DRUGS (2)
  1. SINGULAIR [Suspect]
     Active Substance: MONTELUKAST SODIUM
     Indication: COVID-19
     Dosage: 10 MILLIGRAM ONCE A DAY
     Route: 048
     Dates: start: 2020
  2. LEVOCETIRIZINE [Concomitant]
     Active Substance: LEVOCETIRIZINE
     Indication: COVID-19
     Dosage: 5 MILLIGRAM, ONCE A DAY
     Route: 048
     Dates: start: 2020

REACTIONS (1)
  - Product use in unapproved indication [Unknown]

NARRATIVE: CASE EVENT DATE: 20200101
